FAERS Safety Report 9118812 (Version 2)
Quarter: 2013Q2

REPORT INFORMATION
  Report Type: Spontaneous
  Country: NL (occurrence: NL)
  Receive Date: 20130226
  Receipt Date: 20130416
  Transmission Date: 20140414
  Serious: Yes (Hospitalization, Other)
  Sender: FDA-Public Use
  Company Number: PHHY2013NL018357

PATIENT
  Age: 80 Year
  Sex: Female

DRUGS (10)
  1. ACLASTA [Suspect]
     Indication: OSTEOPOROSIS
     Dosage: 5 MG, UNK
     Route: 042
     Dates: start: 20120328
  2. MOVICOLON [Concomitant]
     Dosage: ONCE DAILY WHEN NEEDED
  3. PARACETAMOL + CODEINE [Concomitant]
     Dosage: 2 DF, BID
  4. TRAMADOL [Concomitant]
     Dosage: 3 DF, UNK
  5. SERETIDE [Concomitant]
     Dosage: 1 DF, QD
  6. SPIRIVA [Concomitant]
     Dosage: 1 DF, BID
  7. CHOLECALCIFEROL [Concomitant]
     Dosage: DRINK 50 000 U PER 14 DAYS
  8. OMEPRAZOLE [Concomitant]
     Dosage: 1 DF, UNK
  9. PREDNISOLONE [Concomitant]
     Dosage: 1 DF, UNK
  10. NICOTINE [Concomitant]
     Dosage: 21 MG/24 HR

REACTIONS (16)
  - Metastases to bone [Unknown]
  - Breast cancer [Unknown]
  - Adenocarcinoma [Unknown]
  - Functional residual capacity abnormal [Unknown]
  - Bronchioloalveolar carcinoma [Unknown]
  - Spinal compression fracture [Unknown]
  - Pubis fracture [Unknown]
  - Lung disorder [Unknown]
  - Lung consolidation [Unknown]
  - Breath sounds abnormal [Unknown]
  - Rhonchi [Unknown]
  - Blood lactate dehydrogenase abnormal [Unknown]
  - Gamma-glutamyltransferase abnormal [Unknown]
  - Arthralgia [Recovered/Resolved]
  - Pain in extremity [Recovered/Resolved]
  - Back pain [Recovered/Resolved]
